FAERS Safety Report 8274340-2 (Version None)
Quarter: 2012Q2

REPORT INFORMATION
  Report Type: 
  Country: None (occurrence: None)
  Receive Date: 20120411
  Receipt Date: 20120402
  Transmission Date: 20120825
  Serious: Yes (Death)
  Sender: FDA-Public Use
  Company Number: US-ROCHE-1048849

PATIENT
  Sex: Female
  Weight: 55.388 kg

DRUGS (7)
  1. IBUPROFEN [Concomitant]
     Route: 048
  2. BENADRYL [Concomitant]
  3. RITUXAN [Suspect]
     Indication: LYMPHOCYTIC LYMPHOMA
     Route: 042
     Dates: start: 20120221, end: 20120221
  4. METHYLPREDNISOLONE [Concomitant]
  5. ALLOPURINOL [Concomitant]
     Indication: LYMPHOMA
     Route: 048
     Dates: start: 20120217, end: 20120224
  6. DEMEROL [Concomitant]
     Dates: start: 20120221
  7. TYLENOL (CAPLET) [Concomitant]

REACTIONS (1)
  - PANCYTOPENIA [None]
